FAERS Safety Report 18040834 (Version 3)
Quarter: 2020Q4

REPORT INFORMATION
  Report Type: Spontaneous
  Country: US (occurrence: US)
  Receive Date: 20200717
  Receipt Date: 20201008
  Transmission Date: 20210113
  Serious: No
  Sender: FDA-Public Use
  Company Number: NVSC2020US201026

PATIENT
  Sex: Female

DRUGS (1)
  1. MEKINIST [Suspect]
     Active Substance: TRAMETINIB DIMETHYL SULFOXIDE
     Indication: OVARIAN CANCER
     Dosage: 1 MG, QD
     Route: 048
     Dates: start: 20200619

REACTIONS (3)
  - Rash [Unknown]
  - Vision blurred [Unknown]
  - Product use in unapproved indication [Unknown]
